FAERS Safety Report 12811000 (Version 1)
Quarter: 2016Q4

REPORT INFORMATION
  Report Type: Spontaneous
  Country: FI (occurrence: FI)
  Receive Date: 20161005
  Receipt Date: 20161005
  Transmission Date: 20170207
  Serious: Yes (Hospitalization)
  Sender: FDA-Public Use
  Company Number: FI-SA-2016SA172314

PATIENT
  Age: 81 Year
  Sex: Female

DRUGS (19)
  1. LANTUS [Suspect]
     Active Substance: INSULIN GLARGINE
     Indication: TYPE 1 DIABETES MELLITUS
     Dosage: DOSE:22 UNIT(S)
     Route: 058
  2. LOSARTAN ORION [Concomitant]
     Route: 048
  3. OFTAGEL [Concomitant]
     Active Substance: CARBOMER
     Dosage: 2 TIMES PER DAY IN BOTH EYES
     Route: 047
     Dates: end: 20151014
  4. NOVORAPID [Suspect]
     Active Substance: INSULIN ASPART
     Indication: TYPE 1 DIABETES MELLITUS
     Dosage: DOSE:1 UNIT PER 10 G CARBOHYDRATES AND 1 UNIT DECREASES BLOOD GLUCOSE 2 MMOL
     Route: 058
  5. THYROXIN [Concomitant]
     Active Substance: LEVOTHYROXINE
     Dosage: 1 TABLET ON MONDAY AND FRIDAY, 0.5 TABLET ON OTHER DAYS
     Route: 048
  6. DONEPEZIL. [Concomitant]
     Active Substance: DONEPEZIL
     Route: 048
  7. OFTAQUIX [Concomitant]
     Active Substance: LEVOFLOXACIN
     Dosage: 1 DROP 3 TIMES PER DAY IN THE LEFT EYE
     Route: 047
     Dates: end: 20151014
  8. PANADOL FORTE [Concomitant]
     Active Substance: ACETAMINOPHEN\CAFFEINE
     Dosage: 1 G WHEN NEEDED, MAX 3 G PER DAY
     Route: 048
  9. LANTUS [Suspect]
     Active Substance: INSULIN GLARGINE
     Indication: TYPE 1 DIABETES MELLITUS
     Route: 058
     Dates: end: 201608
  10. PRAVASTATIN. [Concomitant]
     Active Substance: PRAVASTATIN
     Route: 048
  11. METOHEXAL [Concomitant]
     Active Substance: METOPROLOL SUCCINATE
     Route: 048
     Dates: end: 20151014
  12. PRED FORTE [Concomitant]
     Active Substance: PREDNISOLONE ACETATE
     Dosage: 1 DROP 6 TIMES PER DAY IN THE LEFT EYE
     Route: 047
     Dates: end: 20151014
  13. LANTUS [Suspect]
     Active Substance: INSULIN GLARGINE
     Indication: TYPE 1 DIABETES MELLITUS
     Dosage: DOSE:20 UNIT(S)
     Route: 058
  14. ZANIDIP [Concomitant]
     Active Substance: LERCANIDIPINE HYDROCHLORIDE
     Route: 048
  15. EBIXA [Concomitant]
     Active Substance: MEMANTINE HYDROCHLORIDE
     Route: 048
  16. KLEXANE [Concomitant]
     Active Substance: ENOXAPARIN
     Route: 058
  17. PERSANTINE [Concomitant]
     Active Substance: DIPYRIDAMOLE
     Route: 048
  18. EMGESAN [Concomitant]
     Route: 048
  19. PRIMASPAN [Concomitant]
     Active Substance: ASPIRIN
     Route: 048

REACTIONS (16)
  - Amnestic disorder [Unknown]
  - Hyperglycaemia [Unknown]
  - Drug dose omission [Unknown]
  - Condition aggravated [Unknown]
  - C-reactive protein increased [Recovered/Resolved]
  - Blood glucose fluctuation [Unknown]
  - Blood pressure increased [Unknown]
  - Disorientation [Unknown]
  - Pyrexia [Unknown]
  - Hypophosphataemia [Recovered/Resolved]
  - Blood ketone body increased [Unknown]
  - Glycosylated haemoglobin increased [Unknown]
  - Metabolic acidosis [Recovered/Resolved]
  - Speech disorder [Unknown]
  - Abdominal pain [Unknown]
  - Memory impairment [Unknown]

NARRATIVE: CASE EVENT DATE: 201510
